FAERS Safety Report 4461165-9 (Version None)
Quarter: 2004Q3

REPORT INFORMATION
  Report Type: 
  Country: None (occurrence: None)
  Receive Date: 20040928
  Receipt Date: 20040916
  Transmission Date: 20050211
  Serious: Yes (Hospitalization)
  Sender: FDA-Public Use
  Company Number: SE-BRISTOL-MYERS SQUIBB COMPANY-12705166

PATIENT
  Age: 68 Year
  Sex: Male

DRUGS (2)
  1. HYDREA [Suspect]
     Indication: ESSENTIAL THROMBOCYTHAEMIA
     Dosage: START DATE:  18-MAY-2004
     Route: 048
     Dates: start: 20040619, end: 20040619
  2. ASPIRIN [Concomitant]
     Dosage: TABLET

REACTIONS (4)
  - C-REACTIVE PROTEIN INCREASED [None]
  - CHILLS [None]
  - LIVER DISORDER [None]
  - PYREXIA [None]
